FAERS Safety Report 11512245 (Version 1)
Quarter: 2015Q3

REPORT INFORMATION
  Report Type: Spontaneous
  Country: US (occurrence: None)
  Receive Date: 20150915
  Receipt Date: 20150915
  Transmission Date: 20151125
  Serious: Yes (Death)
  Sender: FDA-Public Use
  Company Number: None

PATIENT
  Age: 72 Year
  Sex: Female

DRUGS (1)
  1. CAPECITABINE 500MG TEVA PHARMACEUTICALS [Suspect]
     Active Substance: CAPECITABINE
     Indication: MALIGNANT LYMPHOID NEOPLASM
     Dosage: 500MG 3 TABS BID X 14 DAYS ORAL
     Route: 048
     Dates: start: 20150414, end: 20150513

REACTIONS (1)
  - Death [None]

NARRATIVE: CASE EVENT DATE: 20150901
